FAERS Safety Report 13029112 (Version 1)
Quarter: 2016Q4

REPORT INFORMATION
  Report Type: Spontaneous
  Country: US (occurrence: US)
  Receive Date: 20161215
  Receipt Date: 20161215
  Transmission Date: 20170207
  Serious: No
  Sender: FDA-Public Use
  Company Number: US-AUROBINDO-AUR-APU-2016-08897

PATIENT
  Sex: Female

DRUGS (1)
  1. MIRTAZAPINE TABLETS 7.5 MG [Suspect]
     Active Substance: MIRTAZAPINE
     Indication: PRODUCT USED FOR UNKNOWN INDICATION
     Dosage: 1 DF THRICE A WEEK
     Route: 065

REACTIONS (1)
  - Weight increased [Not Recovered/Not Resolved]
